FAERS Safety Report 8191788-5 (Version None)
Quarter: 2012Q1

REPORT INFORMATION
  Report Type: 
  Country: None (occurrence: None)
  Receive Date: 20120307
  Receipt Date: 20120301
  Transmission Date: 20120608
  Serious: Yes (Other)
  Sender: FDA-Public Use
  Company Number: CHPA2012SE004093

PATIENT

DRUGS (1)
  1. OTRIVIN [Suspect]
     Dosage: 2-3 BOTTLES PER WEEK
     Route: 045

REACTIONS (3)
  - OVERDOSE [None]
  - DRUG DEPENDENCE [None]
  - INCORRECT DRUG ADMINISTRATION DURATION [None]
